FAERS Safety Report 16791403 (Version 2)
Quarter: 2019Q3

REPORT INFORMATION
  Report Type: Report from Study
  Country: None (occurrence: BE)
  Receive Date: 20190910
  Receipt Date: 20190930
  Transmission Date: 20191005
  Serious: Yes (Other)
  Sender: FDA-Public Use
  Company Number: BE-ABBVIE-19S-013-2719909-00

PATIENT
  Sex: Male

DRUGS (16)
  1. DUODOPA [Suspect]
     Active Substance: CARBIDOPA\LEVODOPA
     Indication: PARKINSON^S DISEASE
     Dosage: MD= 2ML, CD= 2ML/HR DURING 16HRS, ED= 2ML, ND= 2ML/HR DURING 8HRS
     Route: 050
     Dates: start: 20120308, end: 20120312
  2. ZONEGRAN [Concomitant]
     Active Substance: ZONISAMIDE
     Indication: PRODUCT USED FOR UNKNOWN INDICATION
  3. DUODOPA [Suspect]
     Active Substance: CARBIDOPA\LEVODOPA
     Dosage: MD= 4ML, CD= 2ML/HR DURING 16HRS, ED= 1ML
     Route: 050
     Dates: start: 20190322, end: 20190325
  4. NEUPRO [Concomitant]
     Active Substance: ROTIGOTINE
     Indication: PRODUCT USED FOR UNKNOWN INDICATION
     Route: 062
  5. COMTAN [Concomitant]
     Active Substance: ENTACAPONE
     Indication: PARKINSON^S DISEASE
     Route: 048
  6. DUODOPA [Suspect]
     Active Substance: CARBIDOPA\LEVODOPA
     Dosage: MD=0ML, CD=2.4ML/HR DURING 16HRS, ED=2ML
     Route: 050
     Dates: start: 20190528, end: 20190613
  7. DUODOPA [Suspect]
     Active Substance: CARBIDOPA\LEVODOPA
     Dosage: MD=0ML, CD=2.3ML/HR DURING 16HRS, ED=1.5ML
     Route: 050
     Dates: start: 20190613, end: 20190828
  8. DUODOPA [Suspect]
     Active Substance: CARBIDOPA\LEVODOPA
     Dosage: DOSES CONTINUOUSLY MONITORED AND ADAPTED
     Route: 050
     Dates: start: 20120312, end: 201512
  9. DUODOPA [Suspect]
     Active Substance: CARBIDOPA\LEVODOPA
     Dosage: MD= 4ML, CD= 2.2ML/HR DURING 16HRS, ED= 1.5ML
     Route: 050
     Dates: start: 20190325, end: 20190327
  10. DUODOPA [Suspect]
     Active Substance: CARBIDOPA\LEVODOPA
     Dosage: MD= 5ML CD= 2.2ML/HR DURING 16HRS ED= 1.5ML
     Route: 050
     Dates: start: 20190327, end: 20190417
  11. DUODOPA [Suspect]
     Active Substance: CARBIDOPA\LEVODOPA
     Dosage: MD=0ML, ?CD=2.4ML/HR DURING 16HRS,? ED=1.5ML
     Route: 050
     Dates: start: 20190828, end: 20190926
  12. PROLOPA 120 [Concomitant]
     Indication: PRODUCT USED FOR UNKNOWN INDICATION
     Dosage: FORM STRENGTH: 100MG/25MG; UNIT DOSE: 1 TABLET
  13. COMTAN [Concomitant]
     Active Substance: ENTACAPONE
  14. DUODOPA [Suspect]
     Active Substance: CARBIDOPA\LEVODOPA
     Dosage: MD=0ML CD=2.3ML/HR DURING 16HRS ED=2ML
     Route: 050
     Dates: start: 20190417, end: 20190528
  15. PROLOPA 250 [Concomitant]
     Indication: PARKINSON^S DISEASE
     Dosage: FORM STRENGTH: 200MG/50MG;0.5 TABLET, 2 TIMES A DAY + 0.25 TABLET, 4 TIMES A DAY
     Route: 048
  16. PROLOPA 250 [Concomitant]
     Dosage: FORM STRENGTH: 200MG/50MG; 0.5 TABLET, 2 TIMES A DAY + 0.25 TABLET, 3 TIMES A DAY

REACTIONS (10)
  - Aphasia [Unknown]
  - Apathy [Recovering/Resolving]
  - On and off phenomenon [Recovering/Resolving]
  - Wrong technique in device usage process [Unknown]
  - Confusional state [Recovered/Resolved]
  - Terminal state [Unknown]
  - Dyskinesia [Recovering/Resolving]
  - Unresponsive to stimuli [Unknown]
  - Hypophagia [Unknown]
  - Mobility decreased [Not Recovered/Not Resolved]

NARRATIVE: CASE EVENT DATE: 2019
